FAERS Safety Report 16772460 (Version 1)
Quarter: 2019Q3

REPORT INFORMATION
  Report Type: Spontaneous
  Country: US (occurrence: US)
  Receive Date: 20190904
  Receipt Date: 20190904
  Transmission Date: 20191005
  Serious: No
  Sender: FDA-Public Use
  Company Number: US-PTC THERAPEUTICS, INC.-US-2019PTC000975

PATIENT
  Age: 14 Year
  Sex: Male

DRUGS (2)
  1. EMFLAZA [Suspect]
     Active Substance: DEFLAZACORT
     Indication: DUCHENNE MUSCULAR DYSTROPHY
     Dosage: 30 MG, QOD
     Route: 048
     Dates: start: 20170810
  2. EMFLAZA [Suspect]
     Active Substance: DEFLAZACORT
     Dosage: 22.5 MG, QOD
     Route: 048
     Dates: start: 20170810

REACTIONS (2)
  - Off label use [Unknown]
  - Weight decreased [Unknown]

NARRATIVE: CASE EVENT DATE: 20171008
